FAERS Safety Report 5700504-5 (Version None)
Quarter: 2008Q2

REPORT INFORMATION
  Report Type: 
  Country: None (occurrence: None)
  Receive Date: 20080408
  Receipt Date: 20080408
  Transmission Date: 20081010
  Serious: Yes (Other)
  Sender: FDA-Public Use
  Company Number: None

PATIENT
  Age: 11 Year
  Sex: Male
  Weight: 53.5244 kg

DRUGS (3)
  1. SINGULAIR [Suspect]
     Indication: ASTHMA
     Dosage: 1 CHEWABLE TABLET EVERY EVENING PO
     Route: 048
     Dates: start: 20071011, end: 20080314
  2. SINGULAIR [Suspect]
     Indication: HYPERSENSITIVITY
     Dosage: 1 CHEWABLE TABLET EVERY EVENING PO
     Route: 048
     Dates: start: 20071011, end: 20080314
  3. ALBUTEROL [Concomitant]

REACTIONS (5)
  - AGITATION [None]
  - ANGER [None]
  - DEPRESSION [None]
  - STUBBORNNESS [None]
  - SUICIDAL IDEATION [None]
